FAERS Safety Report 7940445-6 (Version None)
Quarter: 2011Q4

REPORT INFORMATION
  Report Type: 
  Country: None (occurrence: None)
  Receive Date: 20111128
  Receipt Date: 20111115
  Transmission Date: 20120403
  Serious: Yes (Death, Hospitalization)
  Sender: FDA-Public Use
  Company Number: ES-AMGEN-ESPSP2011060897

PATIENT
  Age: 78 Year
  Sex: Female

DRUGS (9)
  1. PREDNISONE [Concomitant]
     Indication: RHEUMATOID ARTHRITIS
     Dosage: 5 MG, 1X/DAY
     Route: 048
     Dates: start: 20040101
  2. DIOSMIN [Concomitant]
     Dosage: UNK, 2X/DAY
     Route: 048
     Dates: start: 20040101
  3. ENBREL [Suspect]
     Indication: RHEUMATOID ARTHRITIS
     Dosage: 50 MG, WEEKLY
     Route: 058
     Dates: start: 20110711, end: 20110901
  4. OMEPRAZOLE [Interacting]
     Dosage: UNK
     Route: 048
     Dates: start: 20040101
  5. DEANXIT [Concomitant]
     Dosage: UNK, 1X/DAY
     Route: 048
     Dates: start: 20040101
  6. ARCOXIA [Interacting]
     Indication: RHEUMATOID ARTHRITIS
     Dosage: 90 MG, 1X/DAY
     Route: 048
     Dates: start: 20040101
  7. METHOTREXATE SODIUM [Interacting]
     Indication: RHEUMATOID ARTHRITIS
     Dosage: UNK, WEEKLY
     Dates: start: 20040101, end: 20110901
  8. ACETAMINOPHEN AND TRAMADOL HCL [Interacting]
     Dosage: 37.5MG TRAMADOL/325 MG PARACETAMOL, 3X/DAY
     Route: 048
     Dates: start: 20040101
  9. VERISCAL [Concomitant]
     Dosage: UNK, 1X/DAY
     Route: 048
     Dates: start: 20040101, end: 20110901

REACTIONS (3)
  - DISSEMINATED TUBERCULOSIS [None]
  - DRUG INTERACTION [None]
  - PANCYTOPENIA [None]
